FAERS Safety Report 21769869 (Version 2)
Quarter: 2023Q1

REPORT INFORMATION
  Report Type: Report from Study
  Country: US (occurrence: US)
  Receive Date: 20221223
  Receipt Date: 20230202
  Transmission Date: 20230418
  Serious: Yes (Hospitalization)
  Sender: FDA-Public Use
  Company Number: US-ALNYLAM PHARMACEUTICALS, INC.-ALN-2022-004667

PATIENT

DRUGS (3)
  1. GIVLAARI [Suspect]
     Active Substance: GIVOSIRAN SODIUM
     Indication: Porphyria acute
     Dosage: UNK
     Route: 058
     Dates: start: 20221018, end: 20221018
  2. GIVLAARI [Suspect]
     Active Substance: GIVOSIRAN SODIUM
     Dosage: UNK
     Route: 058
     Dates: start: 20221215, end: 20221215
  3. GIVLAARI [Suspect]
     Active Substance: GIVOSIRAN SODIUM
     Dosage: UNK
     Route: 058
     Dates: start: 20230112

REACTIONS (3)
  - Blood sodium decreased [Not Recovered/Not Resolved]
  - Confusional state [Recovering/Resolving]
  - Nausea [Unknown]
